FAERS Safety Report 8576674-0 (Version None)
Quarter: 2012Q3

REPORT INFORMATION
  Report Type: 
  Country: None (occurrence: None)
  Receive Date: 20120807
  Receipt Date: 20120112
  Transmission Date: 20120928
  Serious: Yes (Other)
  Sender: FDA-Public Use
  Company Number: US-ROCHE-1098178

PATIENT
  Sex: Male

DRUGS (7)
  1. NASACORT [Concomitant]
  2. ALBUTEROL [Concomitant]
  3. ALLEGRA [Concomitant]
  4. PREDNISONE [Concomitant]
     Dosage: 10MG TO 20MG
  5. PREDNISONE [Concomitant]
  6. XOLAIR [Suspect]
     Indication: RHINITIS ALLERGIC
  7. FLUTICASONE PROPIONATE [Concomitant]

REACTIONS (1)
  - PNEUMONIA [None]
